FAERS Safety Report 6821724-2 (Version None)
Quarter: 2010Q3

REPORT INFORMATION
  Report Type: 
  Country: None (occurrence: None)
  Receive Date: 20100702
  Receipt Date: 20100621
  Transmission Date: 20110219
  Serious: Yes (Life-Threatening, Congenital Anomaly)
  Sender: FDA-Public Use
  Company Number: 1-23142195

PATIENT
  Age: 1 Day
  Sex: Female

DRUGS (1)
  1. FENTANYL [Suspect]
     Indication: RESPIRATORY DISTRESS
     Dosage: 20 MCG/KG/H; INTRAUTERINE
     Route: 015

REACTIONS (8)
  - CAESAREAN SECTION [None]
  - HYPOTONIA NEONATAL [None]
  - INFANTILE APNOEIC ATTACK [None]
  - MATERNAL DRUGS AFFECTING FOETUS [None]
  - MUSCLE RIGIDITY [None]
  - NEONATAL RESPIRATORY ACIDOSIS [None]
  - NEONATAL RESPIRATORY DISTRESS SYNDROME [None]
  - PREMATURE BABY [None]
